FAERS Safety Report 11866541 (Version 1)
Quarter: 2015Q4

REPORT INFORMATION
  Report Type: Spontaneous
  Country: FR (occurrence: FR)
  Receive Date: 20151224
  Receipt Date: 20151224
  Transmission Date: 20160305
  Serious: Yes (Hospitalization)
  Sender: FDA-Public Use
  Company Number: FR-ACCORD-036505

PATIENT
  Age: 69 Year
  Sex: Male

DRUGS (6)
  1. FLUOROURACIL ACCORD [Suspect]
     Active Substance: FLUOROURACIL
     Indication: PRODUCT USED FOR UNKNOWN INDICATION
     Dosage: STERNGTH: 50 MG/ML
     Route: 042
     Dates: start: 20151013, end: 20151013
  2. SAPSFON [Concomitant]
     Indication: PRODUCT USED FOR UNKNOWN INDICATION
     Dosage: POSOLOGY AS NEEDED
  3. GAVISCON [Concomitant]
     Active Substance: ALUMINUM HYDROXIDE\MAGNESIUM CARBONATE
     Indication: PRODUCT USED FOR UNKNOWN INDICATION
  4. ESOMEPRAZOLE/ESOMEPRAZOLE MAGNESIUM/ESOMEPRAZOLE SODIUM [Concomitant]
     Indication: PRODUCT USED FOR UNKNOWN INDICATION
     Dosage: 1DF ON THE EVENING PER DAY?STRENGTH: 20 MG
  5. ZOXAN LP [Concomitant]
     Active Substance: DOXAZOSIN MESYLATE
     Indication: PRODUCT USED FOR UNKNOWN INDICATION
     Dosage: STRENGTH: 8 MG?1 DF ON THE EVENING PER DAY
  6. IMODIUM [Concomitant]
     Active Substance: LOPERAMIDE HYDROCHLORIDE
     Indication: PRODUCT USED FOR UNKNOWN INDICATION

REACTIONS (4)
  - Pyrexia [Recovered/Resolved]
  - Accidental overdose [Unknown]
  - Aplasia [Recovered/Resolved]
  - Diarrhoea [Recovered/Resolved]

NARRATIVE: CASE EVENT DATE: 20151013
